FAERS Safety Report 18534652 (Version 1)
Quarter: 2020Q4

REPORT INFORMATION
  Report Type: Spontaneous
  Country: DE (occurrence: DE)
  Receive Date: 20201123
  Receipt Date: 20201123
  Transmission Date: 20210114
  Serious: Yes (Hospitalization)
  Sender: FDA-Public Use
  Company Number: NVSC2020DE302307

PATIENT
  Sex: Female

DRUGS (2)
  1. VALSARTAN - 1 A PHARMA PLUS [Suspect]
     Active Substance: HYDROCHLOROTHIAZIDE\VALSARTAN
     Indication: HYPERTENSION
     Dosage: 1 DF
     Route: 065
     Dates: start: 201602, end: 2018
  2. VALSARTAN - 1 A PHARMA PLUS [Suspect]
     Active Substance: HYDROCHLOROTHIAZIDE\VALSARTAN
     Dosage: 160 MG
     Route: 065
     Dates: start: 201605, end: 201808

REACTIONS (2)
  - Breast cancer [Unknown]
  - Emotional distress [Unknown]

NARRATIVE: CASE EVENT DATE: 201911
